FAERS Safety Report 6934712-2 (Version None)
Quarter: 2010Q3

REPORT INFORMATION
  Report Type: 
  Country: None (occurrence: None)
  Receive Date: 20100820
  Receipt Date: 20100812
  Transmission Date: 20110219
  Serious: Yes (Hospitalization)
  Sender: FDA-Public Use
  Company Number: FR-MERCK-1008FRA00035

PATIENT
  Age: 81 Year
  Sex: Male

DRUGS (3)
  1. PRIMAXIN [Suspect]
     Indication: PYREXIA
     Route: 042
     Dates: start: 20100328, end: 20100414
  2. CYTARABINE [Concomitant]
     Route: 065
     Dates: start: 20100323
  3. VORINOSTAT [Concomitant]
     Route: 065
     Dates: start: 20100323, end: 20100323

REACTIONS (1)
  - TOXIC SKIN ERUPTION [None]
